FAERS Safety Report 6497290-0 (Version None)
Quarter: 2009Q4

REPORT INFORMATION
  Report Type: 
  Country: None (occurrence: None)
  Receive Date: 20091215
  Receipt Date: 20090817
  Transmission Date: 20100525
  Serious: No
  Sender: FDA-Public Use
  Company Number: A0802509A

PATIENT
  Age: 74 Year
  Sex: Male

DRUGS (8)
  1. AVODART [Suspect]
     Indication: BENIGN PROSTATIC HYPERPLASIA
     Dosage: 1CAP PER DAY
     Route: 048
     Dates: start: 20090801, end: 20090809
  2. FLOMAX [Concomitant]
  3. CARBIDOPA [Concomitant]
  4. TYLENOL (CAPLET) [Concomitant]
  5. DICLOFENAC SODIUM [Concomitant]
  6. COZAAR [Concomitant]
  7. LIPITOR [Concomitant]
  8. EFFEXOR [Concomitant]

REACTIONS (3)
  - CHROMATURIA [None]
  - RED BLOOD CELL COUNT INCREASED [None]
  - WHITE BLOOD CELL COUNT INCREASED [None]
